FAERS Safety Report 17386894 (Version 2)
Quarter: 2021Q1

REPORT INFORMATION
  Report Type: Report from Study
  Country: ZA (occurrence: ZA)
  Receive Date: 20200206
  Receipt Date: 20210216
  Transmission Date: 20210419
  Serious: Yes (Hospitalization, Other)
  Sender: FDA-Public Use
  Company Number: PHHY2019ZA037949

PATIENT
  Age: 54 Year
  Sex: Male

DRUGS (3)
  1. TUVIGIN [Suspect]
     Active Substance: FINGOLIMOD HYDROCHLORIDE
     Indication: RELAPSING-REMITTING MULTIPLE SCLEROSIS
     Dosage: 0.5 MG, QD (NEXT 12 MONTHS)
     Route: 048
     Dates: start: 20180213
  2. SOLU?MEDROL [Concomitant]
     Active Substance: METHYLPREDNISOLONE SODIUM SUCCINATE
     Indication: PRODUCT USED FOR UNKNOWN INDICATION
     Dosage: UNK
     Route: 065
  3. VALACYCLOVIR [Concomitant]
     Active Substance: VALACYCLOVIR HYDROCHLORIDE
     Indication: PRODUCT USED FOR UNKNOWN INDICATION
     Dosage: UNK
     Route: 065

REACTIONS (19)
  - Pupillary reflex impaired [Unknown]
  - Acute vestibular syndrome [Unknown]
  - Optic atrophy [Unknown]
  - C-reactive protein decreased [Not Recovered/Not Resolved]
  - Blood bilirubin increased [Not Recovered/Not Resolved]
  - Aspartate aminotransferase [Not Recovered/Not Resolved]
  - Mean cell volume increased [Not Recovered/Not Resolved]
  - Expanded disability status scale [Unknown]
  - Neutrophil count increased [Not Recovered/Not Resolved]
  - Central nervous system lesion [Unknown]
  - Vitamin B12 decreased [Not Recovered/Not Resolved]
  - Muscle spasticity [Unknown]
  - Hypoaesthesia [Recovered/Resolved]
  - Gamma-glutamyltransferase increased [Unknown]
  - Lymphocyte count increased [Not Recovered/Not Resolved]
  - Dysarthria [Unknown]
  - Alanine aminotransferase [Not Recovered/Not Resolved]
  - Bradykinesia [Unknown]
  - White blood cell count decreased [Unknown]

NARRATIVE: CASE EVENT DATE: 201911
